FAERS Safety Report 23444437 (Version 3)
Quarter: 2024Q3

REPORT INFORMATION
  Report Type: Spontaneous
  Country: US (occurrence: US)
  Receive Date: 20240125
  Receipt Date: 20240717
  Transmission Date: 20241017
  Serious: Yes (Other)
  Sender: GLAXOSMITHKLINE
  Company Number: US-GLAXOSMITHKLINE-US2024008739

PATIENT

DRUGS (2)
  1. NUCALA [Suspect]
     Active Substance: MEPOLIZUMAB
     Indication: Asthma
     Dosage: 100 MG
  2. LIPITOR [Concomitant]
     Active Substance: ATORVASTATIN CALCIUM
     Indication: Product used for unknown indication
     Dosage: UNK

REACTIONS (14)
  - Myocardial infarction [Recovered/Resolved]
  - Diabetes mellitus [Unknown]
  - Blindness [Unknown]
  - Asthma [Unknown]
  - Herpes zoster [Not Recovered/Not Resolved]
  - Speech disorder [Unknown]
  - Illness [Unknown]
  - Haemorrhagic disorder [Unknown]
  - Reproductive tract disorder [Unknown]
  - COVID-19 [Unknown]
  - Food poisoning [Unknown]
  - Inappropriate schedule of product administration [Unknown]
  - Product dose omission issue [Unknown]
  - Product distribution issue [Unknown]

NARRATIVE: CASE EVENT DATE: 20240309
